FAERS Safety Report 5147780-8 (Version None)
Quarter: 2006Q4

REPORT INFORMATION
  Report Type: 
  Country: None (occurrence: None)
  Receive Date: 20061110
  Receipt Date: 20061101
  Transmission Date: 20070319
  Serious: Yes (Other)
  Sender: FDA-Public Use
  Company Number: US-BRISTOL-MYERS SQUIBB COMPANY-13563085

PATIENT
  Age: 65 Year
  Sex: Female
  Weight: 79 kg

DRUGS (13)
  1. ORENCIA [Suspect]
     Indication: RHEUMATOID ARTHRITIS
     Route: 042
  2. METHOTREXATE [Concomitant]
  3. AMBIEN [Concomitant]
  4. ASPIRIN [Concomitant]
  5. DIOVAN [Concomitant]
  6. FOLIC ACID [Concomitant]
  7. GLUCOPHAGE [Concomitant]
  8. INDERAL [Concomitant]
  9. LISINOPRIL [Concomitant]
  10. PREDNISONE TAB [Concomitant]
  11. PRILOSEC [Concomitant]
  12. ZETIA [Concomitant]
  13. VICODIN [Concomitant]

REACTIONS (4)
  - DEPRESSION [None]
  - MARITAL PROBLEM [None]
  - STRESS [None]
  - SUICIDAL IDEATION [None]
